FAERS Safety Report 9961402 (Version 1)
Quarter: 2014Q1

REPORT INFORMATION
  Report Type: Spontaneous
  Country: US (occurrence: None)
  Receive Date: 20140127
  Receipt Date: 20140127
  Transmission Date: 20141002
  Serious: Yes (Disabling, Other)
  Sender: FDA-Public Use
  Company Number: 1179602

PATIENT
  Age: 53 Year
  Sex: Male
  Weight: 136 kg

DRUGS (5)
  1. ACTIVASE [Suspect]
     Indication: CEREBRAL HAEMORRHAGE
     Dosage: 9 MG, ONCE, INTRAVENOUS (NOT OTHERWISE SPECIFIED)
     Route: 042
     Dates: start: 20120619, end: 20120619
  2. ASPIRIN (ASPIRIN) [Concomitant]
  3. LABETALOL (LABETALOL HYDROCHLORIDE) [Concomitant]
  4. THIAMIN (THIAMIN HYDROCHLORIDE) [Concomitant]
  5. CARDENE (NICARDIPINE HYDROCHLORIDE) [Concomitant]

REACTIONS (2)
  - Haemorrhage intracranial [None]
  - Cerebral haemorrhage [None]
